FAERS Safety Report 6851027-1 (Version None)
Quarter: 2010Q3

REPORT INFORMATION
  Report Type: 
  Country: None (occurrence: None)
  Receive Date: 20100716
  Receipt Date: 20071025
  Transmission Date: 20110219
  Serious: No
  Sender: FDA-Public Use
  Company Number: US-PFIZER INC-2007090786

PATIENT
  Sex: Female
  Weight: 79.4 kg

DRUGS (10)
  1. CHANTIX [Suspect]
     Indication: SMOKING CESSATION THERAPY
     Dates: start: 20071022
  2. SPIRIVA [Concomitant]
  3. ACETYLSALICYLIC ACID [Concomitant]
  4. PREDNISONE [Concomitant]
  5. POTASSIUM CHLORIDE [Concomitant]
  6. TRAMADOL [Concomitant]
     Indication: PAIN
  7. NEXIUM [Concomitant]
  8. FUROSEMIDE [Concomitant]
  9. SYNTHROID [Concomitant]
     Indication: THYROID DISORDER
  10. ALBUTEROL [Concomitant]

REACTIONS (3)
  - HOT FLUSH [None]
  - HYPOAESTHESIA [None]
  - PAIN IN EXTREMITY [None]
